FAERS Safety Report 9741591 (Version 2)
Quarter: 2013Q4

REPORT INFORMATION
  Report Type: Spontaneous
  Country: DE (occurrence: DE)
  Receive Date: 20131210
  Receipt Date: 20131210
  Transmission Date: 20140711
  Serious: Yes (Death, Hospitalization)
  Sender: FDA-Public Use
  Company Number: DE-ROCHE-1298964

PATIENT
  Age: 75 Year
  Sex: Male
  Weight: 69.9 kg

DRUGS (15)
  1. AVASTIN [Suspect]
     Indication: NON-SMALL CELL LUNG CANCER
     Route: 042
     Dates: start: 20130104, end: 20130104
  2. AVASTIN [Suspect]
     Indication: METASTATIC GASTRIC CANCER
  3. CISPLATIN [Suspect]
     Indication: NON-SMALL CELL LUNG CANCER
     Route: 042
     Dates: start: 20130104, end: 20130104
  4. CISPLATIN [Suspect]
     Indication: METASTATIC GASTRIC CANCER
  5. PACLITAXEL [Suspect]
     Indication: NON-SMALL CELL LUNG CANCER
     Route: 042
     Dates: start: 20130104, end: 20130104
  6. METOCLOPRAMIDE [Concomitant]
     Indication: NAUSEA
     Dosage: 4MG/ML
     Route: 048
  7. VERGENTAN [Concomitant]
  8. ASS [Concomitant]
     Indication: HAEMODILUTION
     Route: 048
  9. PANTOZOL (GERMANY) [Concomitant]
     Route: 065
  10. RENACOR [Concomitant]
     Indication: HYPERTENSION
  11. SIMVASTATIN [Concomitant]
     Route: 065
  12. ISOZID [Concomitant]
     Route: 065
  13. ZOFRAN [Concomitant]
     Route: 065
  14. DICLOFENAC [Concomitant]
     Route: 065
  15. RIOPAN (GERMANY) [Concomitant]
     Route: 065

REACTIONS (5)
  - Large intestine perforation [Fatal]
  - Sepsis [Fatal]
  - Pneumonia [Fatal]
  - Cardiac failure [Fatal]
  - Peritonitis [Unknown]
